FAERS Safety Report 21314574 (Version 3)
Quarter: 2023Q2

REPORT INFORMATION
  Report Type: Spontaneous
  Country: US (occurrence: US)
  Receive Date: 20220909
  Receipt Date: 20230608
  Transmission Date: 20230721
  Serious: Yes (Other)
  Sender: FDA-Public Use
  Company Number: US-PFIZER INC-PV202200059806

PATIENT
  Age: 39 Year
  Sex: Female

DRUGS (1)
  1. XELJANZ XR [Suspect]
     Active Substance: TOFACITINIB CITRATE
     Dosage: UNK
     Dates: start: 20210424

REACTIONS (6)
  - Rheumatoid arthritis [Unknown]
  - Fatigue [Unknown]
  - Feeling abnormal [Unknown]
  - Condition aggravated [Unknown]
  - Arthralgia [Unknown]
  - Product dose omission in error [Unknown]
